FAERS Safety Report 8848298 (Version 1)
Quarter: 2012Q4

REPORT INFORMATION
  Report Type: 
  Country: US (occurrence: US)
  Receive Date: 20121018
  Receipt Date: 20121018
  Transmission Date: 20130627
  Serious: Yes (Other)
  Sender: FDA-Public Use
  Company Number: US-009507513-1103USA03957

PATIENT

DRUGS (2)
  1. FOSAMAX [Suspect]
     Indication: OSTEOPENIA
     Dosage: 70 mg, QW
     Route: 048
     Dates: start: 200306, end: 200611
  2. BONIVA [Suspect]
     Indication: OSTEOPENIA
     Route: 048
     Dates: start: 2006, end: 200904

REACTIONS (48)
  - Tonsillectomy [Unknown]
  - Arthropathy [Unknown]
  - Surgery [Unknown]
  - Deafness neurosensory [Unknown]
  - Gallbladder disorder [Unknown]
  - Osteomyelitis [Unknown]
  - Osteonecrosis of jaw [Unknown]
  - Low turnover osteopathy [Unknown]
  - Exostosis [Unknown]
  - Hypercholesterolaemia [Unknown]
  - Sinusitis [Unknown]
  - Tooth abscess [Unknown]
  - Dental caries [Unknown]
  - Insomnia [Unknown]
  - Micturition urgency [Unknown]
  - Stress urinary incontinence [Unknown]
  - Irritable bowel syndrome [Unknown]
  - Chest pain [Unknown]
  - Chest pain [Unknown]
  - Anal fistula [Unknown]
  - Increased tendency to bruise [Unknown]
  - Dental fistula [Unknown]
  - Palatal disorder [Unknown]
  - Marrow hyperplasia [Unknown]
  - Myositis [Unknown]
  - Meniscus injury [Unknown]
  - Synovial cyst [Unknown]
  - Exostosis of jaw [Unknown]
  - Vertigo positional [Unknown]
  - Balance disorder [Unknown]
  - Glaucoma [Unknown]
  - Eye pain [Unknown]
  - Cataract [Unknown]
  - Coagulopathy [Unknown]
  - Cerumen impaction [Unknown]
  - Hypertriglyceridaemia [Unknown]
  - Chronic obstructive pulmonary disease [Not Recovered/Not Resolved]
  - Electrocardiogram ST-T change [Unknown]
  - Hypoglycaemia [Unknown]
  - Liver function test abnormal [Unknown]
  - Dizziness [Unknown]
  - Headache [Unknown]
  - Dysphagia [Unknown]
  - Arthralgia [Unknown]
  - Back pain [Unknown]
  - Muscle spasms [Unknown]
  - Dyspepsia [Unknown]
  - Joint swelling [Unknown]
